FAERS Safety Report 6895298-4 (Version None)
Quarter: 2010Q3

REPORT INFORMATION
  Report Type: 
  Country: None (occurrence: None)
  Receive Date: 20100802
  Receipt Date: 20100723
  Transmission Date: 20110219
  Serious: Yes (Hospitalization)
  Sender: FDA-Public Use
  Company Number: JP-ABBOTT-08P-087-0479431-00

PATIENT
  Sex: Female
  Weight: 45 kg

DRUGS (6)
  1. HUMIRA [Suspect]
     Indication: ANKYLOSING SPONDYLITIS
     Route: 058
     Dates: start: 20080507, end: 20080922
  2. LOXONIN [Concomitant]
     Indication: ANKYLOSING SPONDYLITIS
     Route: 048
     Dates: start: 20020101, end: 20080201
  3. LOXONIN [Concomitant]
     Dates: end: 20081114
  4. MOBIC [Concomitant]
     Indication: ANKYLOSING SPONDYLITIS
     Route: 048
     Dates: start: 20080202, end: 20080324
  5. MOBIC [Concomitant]
     Route: 048
     Dates: start: 20080325, end: 20080910
  6. REBAMIPIDE [Concomitant]
     Indication: PROPHYLAXIS AGAINST GASTROINTESTINAL ULCER
     Dosage: 6 QM
     Route: 048
     Dates: start: 20080101, end: 20081114

REACTIONS (2)
  - INTERVERTEBRAL DISCITIS [None]
  - OSTEOMYELITIS [None]
